FAERS Safety Report 12816673 (Version 1)
Quarter: 2016Q4

REPORT INFORMATION
  Report Type: Spontaneous
  Country: US (occurrence: US)
  Receive Date: 20161005
  Receipt Date: 20161005
  Transmission Date: 20170207
  Serious: Yes (Other)
  Sender: FDA-Public Use
  Company Number: None

PATIENT
  Age: 66 Year
  Sex: Female
  Weight: 62.1 kg

DRUGS (9)
  1. METRONIZADOLE 500 MG [Suspect]
     Active Substance: METRONIDAZOLE
     Indication: AMOEBIASIS
     Dosage: ?          QUANTITY:1 TABLET(S);?
     Route: 048
  2. LOZARTAN [Concomitant]
  3. CALCIUM [Concomitant]
     Active Substance: CALCIUM
  4. VITAMIN B COMPLEX [Concomitant]
     Active Substance: CYANOCOBALAMIN\DEXPANTHENOL\NIACINAMIDE\PYRIDOXINE HYDROCHLORIDE\RIBOFLAVIN 5^-PHOSPHATE SODIUM\THIAMINE HYDROCHLORIDE\VITAMIN B COMPLEX
  5. MAGNESIUM [Concomitant]
     Active Substance: MAGNESIUM
  6. THYROXIN [Concomitant]
     Active Substance: LEVOTHYROXINE
  7. OMEGA 3 [Concomitant]
     Active Substance: OMEGA-3 FATTY ACIDS
  8. VITAMIN D [Concomitant]
     Active Substance: CHOLECALCIFEROL
  9. PROBIOTICS [Concomitant]
     Active Substance: PROBIOTICS NOS

REACTIONS (3)
  - Dizziness [None]
  - Blood pressure decreased [None]
  - Dry mouth [None]

NARRATIVE: CASE EVENT DATE: 20160729
